FAERS Safety Report 10202652 (Version 1)
Quarter: 2014Q2

REPORT INFORMATION
  Report Type: Spontaneous
  Country: US (occurrence: US)
  Receive Date: 20140528
  Receipt Date: 20140528
  Transmission Date: 20141212
  Serious: Yes (Hospitalization, Other)
  Sender: FDA-Public Use
  Company Number: US-ACTAVIS-2014-11268

PATIENT
  Age: 21 Year
  Sex: Female

DRUGS (2)
  1. MINOCYCLINE HCL (WATSON LABORATORIES) [Suspect]
     Indication: ACNE
     Dosage: UNKNOWN
     Route: 065
  2. ORTHO TRI-CYCLEN LO [Concomitant]
     Indication: PRODUCT USED FOR UNKNOWN INDICATION
     Dosage: UNKNOWN
     Route: 065

REACTIONS (1)
  - Polyarteritis nodosa [Recovering/Resolving]
